FAERS Safety Report 18864015 (Version 2)
Quarter: 2021Q1

REPORT INFORMATION
  Report Type: Report from Study
  Country: CA (occurrence: CA)
  Receive Date: 20210209
  Receipt Date: 20210312
  Transmission Date: 20210420
  Serious: Yes (Hospitalization, Other)
  Sender: FDA-Public Use
  Company Number: CA-REGENERON PHARMACEUTICALS, INC.-2021-20180

PATIENT

DRUGS (1)
  1. EYLEA [Suspect]
     Active Substance: AFLIBERCEPT
     Indication: DIABETIC RETINAL OEDEMA
     Dosage: BILATERAL; DOSE, FREQUENCY AND TOTAL NUMBER OF DOSES NOT REPORTED

REACTIONS (3)
  - Hospitalisation [Not Recovered/Not Resolved]
  - Vitrectomy [Unknown]
  - Product dose omission issue [Unknown]
